FAERS Safety Report 7357689-7 (Version None)
Quarter: 2011Q1

REPORT INFORMATION
  Report Type: 
  Country: None (occurrence: None)
  Receive Date: 20110309
  Receipt Date: 20110302
  Transmission Date: 20110831
  Serious: Yes (Life-Threatening)
  Sender: FDA-Public Use
  Company Number: 1000019011

PATIENT
  Age: 57 Year
  Sex: Male
  Weight: 81 kg

DRUGS (5)
  1. ROFLUMILAST (ROFLUMILAST) (TABLETS) [Suspect]
     Indication: CHRONIC OBSTRUCTIVE PULMONARY DISEASE
     Dosage: 500 MCG, ORAL
     Route: 048
     Dates: start: 20110210, end: 20110219
  2. SPIRIVA [Concomitant]
  3. SYMBICORT (IBUDESONIDE, FORMOTEROL FUMARATE) [Concomitant]
  4. THEOPHYLLINE [Concomitant]
  5. PAROXAT (PAROXETINE HYDROCHLORIDE) [Concomitant]

REACTIONS (4)
  - ANXIETY [None]
  - RESTLESSNESS [None]
  - SUICIDAL IDEATION [None]
  - TREMOR [None]
